FAERS Safety Report 5642963-2 (Version None)
Quarter: 2008Q1

REPORT INFORMATION
  Report Type: 
  Country: None (occurrence: None)
  Receive Date: 20080228
  Receipt Date: 20080226
  Transmission Date: 20080703
  Serious: Yes (Hospitalization)
  Sender: FDA-Public Use
  Company Number: A0641748A

PATIENT
  Age: 59 Year
  Sex: Female
  Weight: 61 kg

DRUGS (4)
  1. LAPATINIB [Suspect]
     Dosage: 1500MG PER DAY
     Route: 048
     Dates: start: 20061201, end: 20070105
  2. RADIATION [Suspect]
     Route: 061
     Dates: start: 20070108, end: 20070226
  3. CORTICOSTEROIDS [Concomitant]
  4. CISPLATIN [Concomitant]

REACTIONS (1)
  - ASTHENIA [None]
